FAERS Safety Report 8501939-8 (Version None)
Quarter: 2012Q3

REPORT INFORMATION
  Report Type: 
  Country: None (occurrence: None)
  Receive Date: 20120711
  Receipt Date: 20120618
  Transmission Date: 20120928
  Serious: No
  Sender: FDA-Public Use
  Company Number: CA-JNJFOC-20120610200

PATIENT
  Sex: Female
  Weight: 120 kg

DRUGS (8)
  1. CITALOPRAM HYDROBROMIDE [Concomitant]
     Route: 065
  2. ARTHROTEC [Concomitant]
     Route: 065
  3. REMICADE [Suspect]
     Indication: CROHN'S DISEASE
     Dosage: HAD 4 INFUSIONS
     Route: 042
     Dates: start: 20120309
  4. HYDROCHLOROTHIAZIDE [Concomitant]
     Route: 065
  5. METOPROLOL SUCCINATE [Concomitant]
     Route: 065
  6. MAXALT [Concomitant]
     Route: 065
  7. IMURAN [Concomitant]
     Route: 065
  8. ELAVIL [Concomitant]
     Route: 065

REACTIONS (2)
  - INFLUENZA [None]
  - UPPER RESPIRATORY TRACT INFECTION [None]
